FAERS Safety Report 6238533-8 (Version None)
Quarter: 2009Q2

REPORT INFORMATION
  Report Type: 
  Country: None (occurrence: None)
  Receive Date: 20090622
  Receipt Date: 20090611
  Transmission Date: 20091009
  Serious: Yes (Other)
  Sender: FDA-Public Use
  Company Number: US-ASTRAZENECA-2009SE02923

PATIENT
  Sex: Male

DRUGS (2)
  1. SEROQUEL [Suspect]
  2. SEROQUEL [Suspect]
     Dosage: SUDDEN INCREASE IN DAILY DOSE

REACTIONS (5)
  - EJACULATION DISORDER [None]
  - ERECTILE DYSFUNCTION [None]
  - ERECTION INCREASED [None]
  - INCORRECT DOSE ADMINISTERED [None]
  - PENILE PAIN [None]
